FAERS Safety Report 11147200 (Version 4)
Quarter: 2015Q3

REPORT INFORMATION
  Report Type: Spontaneous
  Country: US (occurrence: US)
  Receive Date: 20150528
  Receipt Date: 20150703
  Transmission Date: 20151125
  Serious: Yes (Hospitalization, Other)
  Sender: FDA-Public Use
  Company Number: US-GLAXOSMITHKLINE-US2015GSK073126

PATIENT
  Age: 72 Year
  Sex: Male
  Weight: 77.55 kg

DRUGS (6)
  1. XGEVA [Concomitant]
     Active Substance: DENOSUMAB
     Dosage: UNK
  2. EPOGEN [Concomitant]
     Active Substance: ERYTHROPOIETIN
  3. INLYTA [Suspect]
     Active Substance: AXITINIB
     Indication: CLEAR CELL RENAL CELL CARCINOMA
     Dosage: 5 MG, BID
     Route: 048
     Dates: start: 20150410, end: 20150506
  4. VOTRIENT [Suspect]
     Active Substance: PAZOPANIB HYDROCHLORIDE
     Indication: RENAL CANCER METASTATIC
     Dosage: UNK
     Route: 048
     Dates: start: 20140611, end: 20150403
  5. INLYTA [Suspect]
     Active Substance: AXITINIB
     Indication: RENAL CANCER METASTATIC
  6. VOTRIENT [Suspect]
     Active Substance: PAZOPANIB HYDROCHLORIDE
     Indication: RENAL CELL CARCINOMA

REACTIONS (29)
  - Headache [Recovering/Resolving]
  - Diarrhoea [Unknown]
  - Asthenia [Unknown]
  - Skin abrasion [Unknown]
  - Subdural haematoma [Recovering/Resolving]
  - Fall [Recovering/Resolving]
  - Haemodialysis [Unknown]
  - Increased tendency to bruise [Unknown]
  - Confusional state [Recovered/Resolved]
  - Nausea [Recovering/Resolving]
  - Decreased appetite [Unknown]
  - Dehydration [Unknown]
  - Atrial fibrillation [Unknown]
  - Anaemia [Unknown]
  - Weight decreased [Unknown]
  - Hypothyroidism [Unknown]
  - Lipase increased [Unknown]
  - Agitation [Unknown]
  - Vomiting [Recovering/Resolving]
  - Thrombocytopenia [Unknown]
  - Hyperkalaemia [Unknown]
  - Amylase increased [Unknown]
  - Tenderness [Unknown]
  - Contusion [Unknown]
  - Head injury [Recovering/Resolving]
  - Fatigue [Unknown]
  - Orthostatic hypotension [Unknown]
  - Hyponatraemia [Unknown]
  - Renal cell carcinoma [Unknown]

NARRATIVE: CASE EVENT DATE: 20150318
